FAERS Safety Report 16127191 (Version 3)
Quarter: 2019Q2

REPORT INFORMATION
  Report Type: Spontaneous
  Country: FR (occurrence: FR)
  Receive Date: 20190328
  Receipt Date: 20190529
  Transmission Date: 20190711
  Serious: Yes (Hospitalization)
  Sender: FDA-Public Use
  Company Number: FR-ROCHE-2289543

PATIENT
  Age: 65 Year
  Sex: Male
  Weight: 78.5 kg

DRUGS (18)
  1. KETAMINE [Suspect]
     Active Substance: KETAMINE
     Indication: ANAESTHESIA
     Route: 042
     Dates: start: 20181005, end: 20181005
  2. TOPALGIC [TRAMADOL HYDROCHLORIDE] [Suspect]
     Active Substance: TRAMADOL HYDROCHLORIDE
     Indication: PAIN
     Dosage: NEXT DOSE: 12/OCT/2018
     Route: 048
     Dates: start: 20181005, end: 20181012
  3. CEFAZOLINE [CEFAZOLIN] [Suspect]
     Active Substance: CEFAZOLIN
     Indication: INFECTION PROPHYLAXIS
     Route: 042
     Dates: start: 20181005, end: 20181005
  4. EXACYL [Suspect]
     Active Substance: TRANEXAMIC ACID
     Indication: ANAESTHESIA
     Dosage: 0.5 G/5 ML
     Route: 042
     Dates: start: 20181005, end: 20181005
  5. DEXAMETHASONE. [Suspect]
     Active Substance: DEXAMETHASONE
     Indication: ANAESTHESIA
     Route: 042
     Dates: start: 20181005, end: 20181005
  6. ZOLPIDEM [Concomitant]
     Active Substance: ZOLPIDEM\ZOLPIDEM TARTRATE
     Indication: INSOMNIA
     Route: 048
     Dates: start: 20181009, end: 20181017
  7. RIVOTRIL [Suspect]
     Active Substance: CLONAZEPAM
     Indication: PAIN
     Dosage: UNIT DOSE: 15 (DRP)?NEXT DOSE: 16/OCT/2018
     Route: 048
     Dates: start: 20181009, end: 20181016
  8. ISOFUNDINE [Suspect]
     Active Substance: CALCIUM CHLORIDE\MAGNESIUM CHLORIDE\MALIC ACID\POTASSIUM CHLORIDE\SODIUM ACETATE\SODIUM CHLORIDE
     Indication: BLOOD VOLUME EXPANSION
     Route: 042
     Dates: start: 20181005, end: 20181005
  9. SUFENTANIL [Suspect]
     Active Substance: SUFENTANIL
     Indication: ANAESTHESIA
     Route: 042
     Dates: start: 20181005, end: 20181005
  10. DROPERIDOL. [Suspect]
     Active Substance: DROPERIDOL
     Indication: NAUSEA
     Dosage: MOST RECENT DOSE: 07/OCT/2018
     Route: 042
     Dates: start: 20181005, end: 20181007
  11. PROPOFOL. [Suspect]
     Active Substance: PROPOFOL
     Indication: ANAESTHESIA
     Route: 042
     Dates: start: 20181005, end: 20181005
  12. TRACRIUM [Suspect]
     Active Substance: ATRACURIUM BESYLATE
     Indication: ANAESTHESIA
     Route: 042
     Dates: start: 20181005, end: 20181005
  13. LANSOPRAZOLE. [Suspect]
     Active Substance: LANSOPRAZOLE
     Indication: GASTRITIS
     Route: 048
     Dates: start: 20181005, end: 20181012
  14. OXYBUTYNINE [OXYBUTYNIN] [Concomitant]
     Dosage: DATE OF MOST RECENT DOSE: /NOV/2018
     Route: 048
     Dates: start: 20181009, end: 201811
  15. MORPHINE [Suspect]
     Active Substance: MORPHINE
     Indication: PROCEDURAL PAIN
     Dosage: MOST RECENT DOSE: 07/OCT/2018
     Route: 042
     Dates: start: 20181005
  16. PARACETAMOL [Concomitant]
     Active Substance: ACETAMINOPHEN
     Indication: PAIN
     Route: 048
     Dates: start: 20181005, end: 201811
  17. SPASFON LYOC [Concomitant]
     Active Substance: PHLOROGLUCINOL
     Indication: PAIN
     Route: 048
     Dates: start: 20181005, end: 201811
  18. LOVENOX [Concomitant]
     Active Substance: ENOXAPARIN SODIUM
     Indication: THROMBOSIS PROPHYLAXIS
     Dosage: 4 000 UI ANTI-XA/0,4 ML, SOLUTION?DATE OF MOST RECENT DOSE: /NOV/2018
     Route: 058
     Dates: start: 20181005

REACTIONS (1)
  - Pancreatitis acute [Recovered/Resolved]

NARRATIVE: CASE EVENT DATE: 20181010
